FAERS Safety Report 6969023-2 (Version None)
Quarter: 2010Q3

REPORT INFORMATION
  Report Type: 
  Country: None (occurrence: None)
  Receive Date: 20100907
  Receipt Date: 20100827
  Transmission Date: 20110219
  Serious: Yes (Other)
  Sender: FDA-Public Use
  Company Number: US-SANOFI-AVENTIS-2010SA052136

PATIENT
  Age: 49 Year
  Sex: Male

DRUGS (3)
  1. LANTUS [Suspect]
     Indication: TYPE 1 DIABETES MELLITUS
     Dosage: DOSE:68 UNIT(S)
     Route: 058
  2. LANTUS [Suspect]
     Dosage: DOSE:78 UNIT(S)
     Route: 058
     Dates: start: 20091201
  3. AMLODIPINE [Concomitant]
     Indication: HYPERTENSION

REACTIONS (2)
  - HYPOGLYCAEMIC UNCONSCIOUSNESS [None]
  - LIMB CRUSHING INJURY [None]
